FAERS Safety Report 8216706-2 (Version None)
Quarter: 2012Q1

REPORT INFORMATION
  Report Type: 
  Country: None (occurrence: None)
  Receive Date: 20120316
  Receipt Date: 20120313
  Transmission Date: 20120608
  Serious: Yes (Death, Hospitalization)
  Sender: FDA-Public Use
  Company Number: GB-ROCHE-1029226

PATIENT
  Sex: Male
  Weight: 60 kg

DRUGS (10)
  1. ATORVASTATIN [Concomitant]
     Dates: start: 20090101
  2. MUCAINE [Concomitant]
     Dates: start: 20110818
  3. GLICLAZIDE [Concomitant]
     Dates: start: 20090101
  4. RAMIPRIL [Concomitant]
     Dates: start: 20090101
  5. GABAPENTIN [Concomitant]
     Dosage: TOTAL DAILY DOSE:TBC
  6. LOPERAMIDE [Concomitant]
     Dates: start: 20111218
  7. OMEPRAZOLE [Concomitant]
     Dates: start: 20090101
  8. METOCLOPRAMIDE [Concomitant]
     Dates: start: 20100101
  9. ORAMORPH SR [Concomitant]
  10. VEMURAFENIB [Suspect]
     Indication: METASTATIC MALIGNANT MELANOMA
     Dosage: DATE OF LAST DOSE: 04 JAN. 2012
     Route: 048
     Dates: start: 20111215, end: 20120109

REACTIONS (2)
  - DIZZINESS [None]
  - TROPONIN INCREASED [None]
